FAERS Safety Report 8208880-9 (Version None)
Quarter: 2012Q1

REPORT INFORMATION
  Report Type: 
  Country: None (occurrence: None)
  Receive Date: 20120314
  Receipt Date: 20120307
  Transmission Date: 20120608
  Serious: Yes (Hospitalization, Other)
  Sender: FDA-Public Use
  Company Number: GB-GILEAD-2011-0048521

PATIENT
  Sex: Female

DRUGS (2)
  1. LAMIVUDINE (EPIVIR HBV) [Concomitant]
     Indication: HEPATIC CIRRHOSIS
     Dosage: 100MG PER DAY
     Route: 048
     Dates: start: 20040301, end: 20111218
  2. HEPSERA [Suspect]
     Indication: HEPATIC CIRRHOSIS
     Dosage: 10MG PER DAY
     Route: 048
     Dates: start: 20070925, end: 20111218

REACTIONS (9)
  - METABOLIC ACIDOSIS [None]
  - FANCONI SYNDROME ACQUIRED [None]
  - HYPERCHLORAEMIA [None]
  - HYPOKALAEMIA [None]
  - POLYURIA [None]
  - PYREXIA [None]
  - DECREASED APPETITE [None]
  - RENAL TUBULAR DISORDER [None]
  - CHILLS [None]
